FAERS Safety Report 21107225 (Version 2)
Quarter: 2022Q3

REPORT INFORMATION
  Report Type: Spontaneous
  Country: US (occurrence: US)
  Receive Date: 20220720
  Receipt Date: 20220818
  Transmission Date: 20221027
  Serious: Yes (Other)
  Sender: FDA-Public Use
  Company Number: US-PFIZER INC-2017335042

PATIENT
  Age: 16 Year
  Sex: Male

DRUGS (1)
  1. BENEFIX [Suspect]
     Active Substance: COAGULATION FACTOR IX RECOMBINANT HUMAN\ISOPROPYL ALCOHOL
     Indication: Haemorrhage
     Dosage: 1920 IU (PLUS MINUS 10%) FOR MINOR BLEEDS + 3840 IU (PLUS MINUS 10%) FOR MAJOR BLEEDS

REACTIONS (1)
  - Haemorrhage [Unknown]
